FAERS Safety Report 4334528-X (Version None)
Quarter: 2004Q2

REPORT INFORMATION
  Report Type: 
  Country: None (occurrence: None)
  Receive Date: 20040407
  Receipt Date: 20040325
  Transmission Date: 20050107
  Serious: Yes (Death, Hospitalization)
  Sender: FDA-Public Use
  Company Number: SE-GLAXOSMITHKLINE-B0328035A

PATIENT
  Age: 75 Year
  Sex: Male

DRUGS (6)
  1. ZINACEF [Suspect]
     Indication: INFECTION
     Route: 065
     Dates: start: 20031001, end: 20031001
  2. TEGRETOL [Suspect]
     Indication: CONVULSION
     Route: 065
     Dates: start: 20030901, end: 20031101
  3. SELEXID [Suspect]
     Indication: URINARY TRACT INFECTION
     Route: 065
     Dates: start: 20031010, end: 20031011
  4. ERYMAX [Suspect]
     Indication: INFECTION
     Route: 065
     Dates: start: 20031011, end: 20031016
  5. CLINDAMYCIN HCL [Suspect]
     Indication: INFECTION
     Route: 065
     Dates: start: 20031001, end: 20031001
  6. VANCOCIN HCL [Concomitant]
     Indication: STAPHYLOCOCCAL INFECTION
     Route: 065

REACTIONS (17)
  - AORTIC STENOSIS [None]
  - ATRIOVENTRICULAR BLOCK COMPLETE [None]
  - CONDITION AGGRAVATED [None]
  - DERMATITIS EXFOLIATIVE [None]
  - ENDOCARDITIS [None]
  - LIVER FUNCTION TEST ABNORMAL [None]
  - LUNG INFILTRATION [None]
  - PETIT MAL EPILEPSY [None]
  - PYREXIA [None]
  - RASH [None]
  - RENAL INFARCT [None]
  - SHOCK [None]
  - SKIN DESQUAMATION [None]
  - SPLENIC ABSCESS [None]
  - SPLENOMEGALY [None]
  - STAPHYLOCOCCAL SEPSIS [None]
  - URINARY TRACT INFECTION [None]
